FAERS Safety Report 12053840 (Version 2)
Quarter: 2019Q1

REPORT INFORMATION
  Report Type: Report from Study
  Country: US (occurrence: US)
  Receive Date: 20160209
  Receipt Date: 20190128
  Transmission Date: 20190417
  Serious: Yes (Other)
  Sender: FDA-Public Use
  Company Number: US-SA-2015SA188691

PATIENT
  Age: 67 Year
  Sex: Female
  Weight: 65.7 kg

DRUGS (13)
  1. CRESTOR [Concomitant]
     Active Substance: ROSUVASTATIN CALCIUM
     Dosage: UNK UNK,UNK
     Route: 065
  2. CALCIUM [Concomitant]
     Active Substance: CALCIUM
     Dosage: UNK
  3. ALIROCUMAB [Suspect]
     Active Substance: ALIROCUMAB
     Dosage: 75 MG, QOW
     Route: 058
     Dates: start: 201710
  4. ZETIA [Concomitant]
     Active Substance: EZETIMIBE
     Dosage: 10 MG,UNK
  5. METOPROLOL. [Concomitant]
     Active Substance: METOPROLOL
     Indication: PALPITATIONS
     Dosage: UNK
     Dates: start: 201412
  6. REPATHA [Concomitant]
     Active Substance: EVOLOCUMAB
     Dosage: UNK UNK,UNK
     Route: 065
  7. FISH OIL [Concomitant]
     Active Substance: FISH OIL
     Dosage: UNK
  8. ERGOCALCIFEROL. [Concomitant]
     Active Substance: ERGOCALCIFEROL
     Dosage: UNK
  9. ALIROCUMAB [Suspect]
     Active Substance: ALIROCUMAB
     Indication: HYPERCHOLESTEROLAEMIA
     Dosage: 75 MG,QOW
     Route: 065
     Dates: start: 20150812, end: 20150923
  10. ALIROCUMAB [Suspect]
     Active Substance: ALIROCUMAB
     Indication: TYPE IIA HYPERLIPIDAEMIA
     Dosage: 150 MG,QOW
     Route: 065
     Dates: start: 20151008, end: 20151130
  11. ALIROCUMAB [Suspect]
     Active Substance: ALIROCUMAB
     Dosage: 75 MG,QOW
     Route: 065
     Dates: end: 201601
  12. DHEA [Concomitant]
     Active Substance: PRASTERONE
     Dosage: UNK
  13. CURCUMIN [Concomitant]
     Active Substance: CURCUMIN
     Dosage: UNK

REACTIONS (12)
  - Gastrointestinal disorder [Not Recovered/Not Resolved]
  - Throat irritation [Unknown]
  - Parasitic gastroenteritis [Not Recovered/Not Resolved]
  - Fatigue [Unknown]
  - Chills [Unknown]
  - Drug ineffective [Unknown]
  - Nasopharyngitis [Unknown]
  - Myalgia [Unknown]
  - Clostridium difficile infection [Not Recovered/Not Resolved]
  - Cough [Unknown]
  - Musculoskeletal stiffness [Unknown]
  - Influenza like illness [Recovered/Resolved]

NARRATIVE: CASE EVENT DATE: 201510
